FAERS Safety Report 6317945-8 (Version None)
Quarter: 2009Q3

REPORT INFORMATION
  Report Type: 
  Country: None (occurrence: None)
  Receive Date: 20090820
  Receipt Date: 20090820
  Transmission Date: 20100115
  Serious: Yes (Life-Threatening, Hospitalization)
  Sender: FDA-Public Use
  Company Number: None

PATIENT
  Age: 28 Year
  Sex: Female
  Weight: 56.6996 kg

DRUGS (6)
  1. AZITHROMYCIN [Suspect]
     Indication: LYMPHADENOPATHY
     Dosage: 500 MG 5 DAYS PO
     Route: 048
     Dates: start: 20090724, end: 20090729
  2. AZITHROMYCIN [Suspect]
     Indication: OROPHARYNGEAL PAIN
     Dosage: 500 MG 5 DAYS PO
     Route: 048
     Dates: start: 20090724, end: 20090729
  3. AZITHROMYCIN [Suspect]
     Indication: SINUSITIS
     Dosage: 500 MG 5 DAYS PO
     Route: 048
     Dates: start: 20090724, end: 20090729
  4. AZITHROMYCIN [Suspect]
     Indication: LYMPHADENOPATHY
     Dosage: 500 MG 5 DAYS PO
     Route: 048
     Dates: start: 20090601
  5. AZITHROMYCIN [Suspect]
     Indication: OROPHARYNGEAL PAIN
     Dosage: 500 MG 5 DAYS PO
     Route: 048
     Dates: start: 20090601
  6. AZITHROMYCIN [Suspect]
     Indication: SINUSITIS
     Dosage: 500 MG 5 DAYS PO
     Route: 048
     Dates: start: 20090601

REACTIONS (2)
  - ANGIOEDEMA [None]
  - LYMPHADENOPATHY [None]
